FAERS Safety Report 5312720-5 (Version None)
Quarter: 2007Q2

REPORT INFORMATION
  Report Type: 
  Country: None (occurrence: None)
  Receive Date: 20070430
  Receipt Date: 20070425
  Transmission Date: 20071010
  Serious: Yes (Other)
  Sender: FDA-Public Use
  Company Number: US-AMGEN-US148571

PATIENT
  Sex: Female

DRUGS (15)
  1. PANITUMUMAB [Suspect]
     Indication: COLORECTAL CANCER
     Route: 042
     Dates: start: 20050718
  2. AVASTIN [Suspect]
     Route: 042
  3. FLUOROURACIL [Concomitant]
     Route: 042
  4. LEUCOVORIN CALCIUM [Concomitant]
     Route: 042
  5. OXALIPLATIN [Concomitant]
     Route: 042
  6. METOPROLOL SUCCINATE [Concomitant]
     Route: 065
  7. VITAMIN CAP [Concomitant]
     Route: 065
  8. HYDROCHLOROTHIAZIDE [Concomitant]
     Route: 065
  9. FERROUS SULFATE TAB [Concomitant]
     Route: 065
  10. COMPAZINE [Concomitant]
     Route: 065
  11. CLINDAMYCIN [Concomitant]
     Route: 065
  12. MOTRIN [Concomitant]
     Route: 065
  13. ATIVAN [Concomitant]
     Route: 065
  14. DECADRON [Concomitant]
     Route: 065
  15. HYDROCORTISONE [Concomitant]
     Route: 061

REACTIONS (1)
  - FEMALE GENITAL TRACT FISTULA [None]
